FAERS Safety Report 23562268 (Version 2)
Quarter: 2024Q4

REPORT INFORMATION
  Report Type: Spontaneous
  Country: US (occurrence: US)
  Receive Date: 20240226
  Receipt Date: 20241224
  Transmission Date: 20250115
  Serious: Yes (Hospitalization, Other)
  Sender: SANOFI AVENTIS
  Company Number: US-SA-SAC20240221000773

PATIENT
  Age: 51 Year
  Sex: Female
  Weight: 67.1 kg

DRUGS (9)
  1. DUPIXENT [Suspect]
     Active Substance: DUPILUMAB
     Indication: Asthma
     Dosage: 300 MG, QOW
     Route: 058
     Dates: start: 20230814
  2. ONDANSETRON HYDROCHLORIDE [Concomitant]
     Active Substance: ONDANSETRON HYDROCHLORIDE
  3. OZEMPIC [Concomitant]
     Active Substance: SEMAGLUTIDE
  4. OMEPRAZOLE [Concomitant]
     Active Substance: OMEPRAZOLE
  5. FLUTICASONE FUROATE\SALMETEROL XINAFOATE [Concomitant]
     Active Substance: FLUTICASONE FUROATE\SALMETEROL XINAFOATE
  6. DIPROLENE [Concomitant]
     Active Substance: BETAMETHASONE DIPROPIONATE
  7. ADVAIR HFA [Concomitant]
     Active Substance: FLUTICASONE PROPIONATE\SALMETEROL XINAFOATE
  8. VENLAFAXINE HCL [Concomitant]
     Active Substance: VENLAFAXINE HYDROCHLORIDE
  9. MELATONIN [Concomitant]
     Active Substance: MELATONIN

REACTIONS (8)
  - Pneumonia [Unknown]
  - Pneumothorax [Unknown]
  - Pulmonary oedema [Unknown]
  - Aphonia [Recovered/Resolved]
  - Laryngitis fungal [Recovering/Resolving]
  - Injection site pain [Not Recovered/Not Resolved]
  - Oral herpes [Unknown]
  - Condition aggravated [Unknown]

NARRATIVE: CASE EVENT DATE: 20230101
